FAERS Safety Report 10328517 (Version 3)
Quarter: 2014Q3

REPORT INFORMATION
  Report Type: Spontaneous
  Country: US (occurrence: US)
  Receive Date: 20140721
  Receipt Date: 20140917
  Transmission Date: 20150326
  Serious: Yes (Other)
  Sender: FDA-Public Use
  Company Number: US-BAYER-2014-108775

PATIENT
  Age: 23 Year
  Sex: Female
  Weight: 119.27 kg

DRUGS (3)
  1. SKYLA [Suspect]
     Active Substance: LEVONORGESTREL
     Indication: CONTRACEPTION
     Dosage: 14 MCG/24HR, CONT
     Route: 015
     Dates: start: 20140331, end: 20140714
  2. IRON [Concomitant]
     Active Substance: IRON
     Dosage: 325 MG, QD
  3. SKYLA [Suspect]
     Active Substance: LEVONORGESTREL
     Indication: CONTRACEPTION
     Dosage: UNK

REACTIONS (4)
  - Pregnancy with contraceptive device [None]
  - Drug ineffective [None]
  - Abortion spontaneous [None]
  - Gestational hypertension [None]

NARRATIVE: CASE EVENT DATE: 20140609
